FAERS Safety Report 9266861 (Version 1)
Quarter: 2013Q2

REPORT INFORMATION
  Report Type: Spontaneous
  Country: FR (occurrence: FR)
  Receive Date: 20130501
  Receipt Date: 20130501
  Transmission Date: 20140414
  Serious: Yes (Hospitalization, Congenital Anomaly, Other)
  Sender: FDA-Public Use
  Company Number: FR-PW/020703/353

PATIENT
  Age: 0 Day
  Sex: Male

DRUGS (3)
  1. SUBUTEX [Suspect]
     Indication: DRUG DEPENDENCE
     Route: 064
     Dates: end: 20020101
  2. LEXOMIL [Suspect]
     Indication: ANXIETY
     Route: 064
     Dates: end: 20020101
  3. DEPAKINE TABLETS [Concomitant]
     Indication: EPILEPSY
     Dosage: 500MG ORAL
     Route: 064
     Dates: end: 20020101

REACTIONS (5)
  - Hypotonia neonatal [Recovered/Resolved]
  - Neonatal respiratory depression [Recovered/Resolved]
  - Drug withdrawal syndrome neonatal [Recovered/Resolved]
  - Skull malformation [Unknown]
  - Foetal exposure during pregnancy [Recovered/Resolved]
